FAERS Safety Report 20150445 (Version 5)
Quarter: 2022Q1

REPORT INFORMATION
  Report Type: Spontaneous
  Country: US (occurrence: US)
  Receive Date: 20211206
  Receipt Date: 20220223
  Transmission Date: 20220423
  Serious: Yes (Hospitalization)
  Sender: FDA-Public Use
  Company Number: US-Global Blood Therapeutics Inc-US-GBT-21-03590

PATIENT
  Age: 59 Year
  Sex: Male

DRUGS (3)
  1. OXBRYTA [Suspect]
     Active Substance: VOXELOTOR
     Indication: Product used for unknown indication
     Route: 048
     Dates: end: 2021
  2. OXBRYTA [Suspect]
     Active Substance: VOXELOTOR
     Dosage: NOT PROVIDED
     Route: 048
     Dates: start: 2021
  3. FERRIPROX [Concomitant]
     Active Substance: DEFERIPRONE
     Indication: Product used for unknown indication
     Dosage: NOT PROVIDED
     Dates: end: 202112

REACTIONS (4)
  - Thirst [Unknown]
  - Sickle cell anaemia with crisis [Not Recovered/Not Resolved]
  - Chromaturia [Unknown]
  - Product availability issue [Unknown]

NARRATIVE: CASE EVENT DATE: 20211003
